FAERS Safety Report 5743255-3 (Version None)
Quarter: 2008Q2

REPORT INFORMATION
  Report Type: 
  Country: None (occurrence: None)
  Receive Date: 20080519
  Receipt Date: 20080507
  Transmission Date: 20081010
  Serious: Yes (Life-Threatening, Hospitalization, Other)
  Sender: FDA-Public Use
  Company Number: ZA-PFIZER INC-2008035665

PATIENT
  Age: 80 Year
  Sex: Male

DRUGS (1)
  1. GEODON [Suspect]
     Route: 030

REACTIONS (1)
  - RESPIRATORY DEPRESSION [None]
